FAERS Safety Report 6495233-7 (Version None)
Quarter: 2009Q4

REPORT INFORMATION
  Report Type: 
  Country: None (occurrence: None)
  Receive Date: 20091214
  Receipt Date: 20090518
  Transmission Date: 20100525
  Serious: No
  Sender: FDA-Public Use
  Company Number: US-BRISTOL-MYERS SQUIBB COMPANY-14627079

PATIENT
  Age: 63 Year
  Sex: Female
  Weight: 63 kg

DRUGS (6)
  1. ABILIFY [Suspect]
     Indication: BIPOLAR DISORDER
     Dosage: PREVIOUS TOOK ABILIFY 5MG AND 10MG FOR SHORT PERIOD IN 2007
     Dates: start: 20090501
  2. ABILIFY [Suspect]
     Indication: SCHIZOPHRENIA
     Dosage: PREVIOUS TOOK ABILIFY 5MG AND 10MG FOR SHORT PERIOD IN 2007
     Dates: start: 20090501
  3. ABILIFY [Suspect]
     Indication: SOCIAL PHOBIA
     Dosage: PREVIOUS TOOK ABILIFY 5MG AND 10MG FOR SHORT PERIOD IN 2007
     Dates: start: 20090501
  4. ABILIFY [Suspect]
     Indication: PARANOIA
     Dosage: PREVIOUS TOOK ABILIFY 5MG AND 10MG FOR SHORT PERIOD IN 2007
     Dates: start: 20090501
  5. ASPIRIN [Concomitant]
     Dosage: BAYER BACK AND BODY ASPIRIN
  6. ASPIRIN [Concomitant]

REACTIONS (4)
  - BALANCE DISORDER [None]
  - DROOLING [None]
  - MUSCULAR WEAKNESS [None]
  - MYALGIA [None]
